FAERS Safety Report 9261282 (Version 1)
Quarter: 2013Q2

REPORT INFORMATION
  Report Type: Spontaneous
  Country: US (occurrence: US)
  Receive Date: 20130429
  Receipt Date: 20130429
  Transmission Date: 20140414
  Serious: Yes (Other)
  Sender: FDA-Public Use
  Company Number: US-GLAXOSMITHKLINE-A1015796A

PATIENT
  Age: 63 Year
  Sex: Female
  Weight: 75.5 kg

DRUGS (2)
  1. POTIGA [Suspect]
     Indication: CONVULSION
     Route: 048
  2. VIMPAT [Concomitant]
     Indication: CONVULSION

REACTIONS (2)
  - Arrhythmia [Recovering/Resolving]
  - Condition aggravated [Recovering/Resolving]
